FAERS Safety Report 9496200 (Version 2)
Quarter: 2013Q3

REPORT INFORMATION
  Report Type: Spontaneous
  Country: JP (occurrence: None)
  Receive Date: 20130829
  Receipt Date: 20130909
  Transmission Date: 20140515
  Serious: Yes (Hospitalization)
  Sender: FDA-Public Use
  Company Number: VAL_02704_2013

PATIENT
  Age: 40 Year
  Sex: Female

DRUGS (1)
  1. METHYLERGOMETRINE [Suspect]
     Indication: PRODUCT USED FOR UNKNOWN INDICATION
     Dosage: STARTED 3 HOURS AFTER THE DELIVERY
     Route: 048

REACTIONS (6)
  - Acute myocardial infarction [None]
  - Back pain [None]
  - Ventricular hypokinesia [None]
  - Chest pain [None]
  - Electrocardiogram ST segment elevation [None]
  - Arteriospasm coronary [None]
